FAERS Safety Report 11966634 (Version 1)
Quarter: 2016Q1

REPORT INFORMATION
  Report Type: Spontaneous
  Country: US (occurrence: US)
  Receive Date: 20160127
  Receipt Date: 20160127
  Transmission Date: 20160526
  Serious: No
  Sender: FDA-Public Use
  Company Number: US-EISAI MEDICAL RESEARCH-EC-2016-013699

PATIENT
  Age: 64 Year
  Sex: Female

DRUGS (3)
  1. ACIPHEX [Suspect]
     Active Substance: RABEPRAZOLE SODIUM
     Dosage: GENERIC ACIPHEX
     Route: 048
     Dates: start: 201512, end: 201601
  2. ACIPHEX [Suspect]
     Active Substance: RABEPRAZOLE SODIUM
     Indication: GASTROOESOPHAGEAL REFLUX DISEASE
     Dosage: BRAND ACIPHEX
     Route: 048
     Dates: end: 201512
  3. ACIPHEX [Suspect]
     Active Substance: RABEPRAZOLE SODIUM
     Dosage: BRAND ACIPHEX
     Route: 048
     Dates: start: 201601, end: 201601

REACTIONS (3)
  - Product quality issue [Recovered/Resolved]
  - Nausea [Recovered/Resolved]
  - Tongue discolouration [Recovered/Resolved]

NARRATIVE: CASE EVENT DATE: 201601
